FAERS Safety Report 5515395-5 (Version None)
Quarter: 2007Q4

REPORT INFORMATION
  Report Type: 
  Country: None (occurrence: None)
  Receive Date: 20071113
  Receipt Date: 20070206
  Transmission Date: 20080405
  Serious: No
  Sender: FDA-Public Use
  Company Number: A0638579A

PATIENT
  Age: 71 Year
  Sex: Male

DRUGS (10)
  1. COREG [Suspect]
     Dosage: 3.125MG TWICE PER DAY
     Route: 048
     Dates: start: 20061121
  2. KLOR-CON [Concomitant]
  3. FUROSEMIDE [Concomitant]
  4. LIPITOR [Concomitant]
  5. PLAVIX [Concomitant]
  6. FLOMAX [Concomitant]
  7. ASPIRIN [Concomitant]
  8. METANX [Concomitant]
  9. SLOW MAG [Concomitant]
  10. LANTUS [Concomitant]

REACTIONS (1)
  - HYPOTENSION [None]
